FAERS Safety Report 15181000 (Version 1)
Quarter: 2018Q3

REPORT INFORMATION
  Report Type: Spontaneous
  Country: US (occurrence: US)
  Receive Date: 20180623
  Receipt Date: 20180623
  Transmission Date: 20181010
  Serious: Yes (Life-Threatening, Other)
  Sender: FDA-Public Use
  Company Number: None

PATIENT
  Age: 12 Year
  Sex: Female
  Weight: 40.05 kg

DRUGS (2)
  1. FLUTICASONE PROPIONATE. [Suspect]
     Active Substance: FLUTICASONE PROPIONATE
     Indication: PRODUCT USED FOR UNKNOWN INDICATION
     Dosage: ?          QUANTITY:1 DF DOSAGE FORM;OTHER ROUTE:NOSE?
     Dates: start: 20180208, end: 20180221
  2. NOSE SPRAY ZERTECT AND INHALER [Concomitant]

REACTIONS (4)
  - Dizziness [None]
  - Product use issue [None]
  - Epistaxis [None]
  - Nausea [None]

NARRATIVE: CASE EVENT DATE: 20180217
